FAERS Safety Report 8775857 (Version 2)
Quarter: 2012Q4

REPORT INFORMATION
  Report Type: 
  Country: FR (occurrence: FR)
  Receive Date: 20120910
  Receipt Date: 20120910
  Transmission Date: 20130627
  Serious: Yes (Hospitalization)
  Sender: FDA-Public Use
  Company Number: FR-ROCHE-1108778

PATIENT
  Age: 93 Year
  Sex: Male

DRUGS (9)
  1. RIVOTRIL [Suspect]
     Indication: PRODUCT USED FOR UNKNOWN INDICATION
     Route: 048
     Dates: start: 201203, end: 20120809
  2. LYRICA [Suspect]
     Indication: PRODUCT USED FOR UNKNOWN INDICATION
     Route: 048
     Dates: start: 201203, end: 20120809
  3. ZOFENOPRIL CALCIUM. [Concomitant]
     Route: 048
  4. SELOKEN [Concomitant]
     Route: 048
  5. KARDEGIC [Concomitant]
     Route: 048
  6. LASILIX [Concomitant]
     Route: 048
  7. TAHOR [Concomitant]
     Route: 048
  8. ZANIDIP [Concomitant]
     Route: 048
  9. SEROPLEX [Concomitant]

REACTIONS (4)
  - Oxygen saturation decreased [Recovered/Resolved]
  - Somnolence [Recovered/Resolved]
  - Respiratory depression [None]
  - Blood pressure systolic increased [None]
